FAERS Safety Report 10817417 (Version 2)
Quarter: 2015Q1

REPORT INFORMATION
  Report Type: Spontaneous
  Country: IT (occurrence: None)
  Receive Date: 20150213
  Receipt Date: 20150226
  Transmission Date: 20150721
  Serious: Yes (Hospitalization)
  Sender: FDA-Public Use
  Company Number: 2735238

PATIENT
  Age: 67 Year
  Sex: Male
  Weight: 70 kg

DRUGS (2)
  1. OXALIPLATIN. [Suspect]
     Active Substance: OXALIPLATIN
     Indication: HETEROPLASIA
     Dosage: CYCLICAL
     Route: 041
     Dates: start: 20150126, end: 20150126
  2. OXALIPLATIN. [Suspect]
     Active Substance: OXALIPLATIN
     Indication: ANORECTAL DISORDER
     Dosage: CYCLICAL
     Route: 041
     Dates: start: 20150126, end: 20150126

REACTIONS (10)
  - Muscle contractions involuntary [None]
  - Loss of consciousness [None]
  - Hypotension [None]
  - Dyspnoea [None]
  - Infusion related reaction [None]
  - Dyskinesia [None]
  - Clonus [None]
  - Deformity [None]
  - Faecal incontinence [None]
  - Rash [None]

NARRATIVE: CASE EVENT DATE: 20150126
